FAERS Safety Report 5384705-4 (Version None)
Quarter: 2007Q3

REPORT INFORMATION
  Report Type: 
  Country: None (occurrence: None)
  Receive Date: 20070711
  Receipt Date: 20070702
  Transmission Date: 20080115
  Serious: Yes (Disabling, Other)
  Sender: FDA-Public Use
  Company Number: GB-PFIZER INC-2007050138

PATIENT
  Age: 59 Year
  Sex: Female
  Weight: 76.2 kg

DRUGS (6)
  1. CHAMPIX [Suspect]
     Indication: SMOKING CESSATION THERAPY
     Route: 048
  2. AMITRIPTYLINE HCL [Concomitant]
     Route: 048
  3. LORATADINE [Concomitant]
     Route: 048
  4. MOMETASONE FUROATE [Concomitant]
     Route: 061
  5. OMEPRAZOLE [Concomitant]
     Route: 048
  6. SIMVASTATIN [Concomitant]
     Route: 048

REACTIONS (7)
  - BRONCHOSPASM [None]
  - COUGH [None]
  - DYSPNOEA [None]
  - LOWER RESPIRATORY TRACT INFECTION [None]
  - PRODUCTIVE COUGH [None]
  - TACHYPNOEA [None]
  - WHEEZING [None]
